FAERS Safety Report 23521082 (Version 2)
Quarter: 2024Q1

REPORT INFORMATION
  Report Type: Report from Study
  Country: US (occurrence: US)
  Receive Date: 20240214
  Receipt Date: 20240220
  Transmission Date: 20240410
  Serious: Yes (Hospitalization, Other)
  Sender: FDA-Public Use
  Company Number: US-ABBVIE-5637397

PATIENT
  Age: 67 Year
  Sex: Male

DRUGS (2)
  1. SKYRIZI [Suspect]
     Active Substance: RISANKIZUMAB-RZAA
     Indication: Psoriasis
     Route: 058
     Dates: start: 20180209
  2. SKYRIZI [Suspect]
     Active Substance: RISANKIZUMAB-RZAA
     Route: 058
     Dates: start: 20160218

REACTIONS (5)
  - Cerebrovascular accident [Not Recovered/Not Resolved]
  - Psoriasis [Recovering/Resolving]
  - Amnesia [Unknown]
  - Hypertension [Unknown]
  - Ageusia [Unknown]

NARRATIVE: CASE EVENT DATE: 20170217
